FAERS Safety Report 4283530-5 (Version None)
Quarter: 2004Q1

REPORT INFORMATION
  Report Type: 
  Country: None (occurrence: None)
  Receive Date: 20040120
  Receipt Date: 20000515
  Transmission Date: 20041129
  Serious: Yes (Other)
  Sender: FDA-Public Use
  Company Number: NSADSS2003023836

PATIENT
  Age: 28 Year
  Sex: Female
  Weight: 65.318 kg

DRUGS (1)
  1. PARAGARD T380A (INTRAUTERINE CONTRACEPTIVE DEVICE) [Suspect]
     Indication: INTRA-UTERINE CONTRACEPTIVE DEVICE INSERTION
     Dosage: INTRAUTERINE
     Route: 015
     Dates: start: 20030508, end: 20030512

REACTIONS (3)
  - PAIN [None]
  - UTERINE HAEMORRHAGE [None]
  - UTERINE PERFORATION [None]
